FAERS Safety Report 25945492 (Version 1)
Quarter: 2025Q4

REPORT INFORMATION
  Report Type: Spontaneous
  Country: US (occurrence: None)
  Receive Date: 20251021
  Receipt Date: 20251021
  Transmission Date: 20260118
  Serious: Yes (Hospitalization)
  Sender: FDA-CTU
  Company Number: None

PATIENT
  Age: 68 Year
  Sex: Female

DRUGS (15)
  1. TACROLIMUS [Suspect]
     Active Substance: TACROLIMUS
     Indication: Lung transplant
     Dosage: FREQUENCY : TWICE A DAY;?
     Route: 048
  2. MYCOPHENOLIC ACID [Suspect]
     Active Substance: MYCOPHENOLIC ACID
     Indication: Lung transplant
  3. CALCIUM\VITAMIN D [Concomitant]
     Active Substance: CALCIUM\VITAMIN D
     Dates: start: 20231223
  4. PREDNISONE [Concomitant]
     Active Substance: PREDNISONE
     Dates: start: 20231223
  5. SULFAMETHOXAZOLE\TRIMETHOPRIM [Concomitant]
     Active Substance: SULFAMETHOXAZOLE\TRIMETHOPRIM
     Dates: start: 20231223
  6. TACROLIMUS [Concomitant]
     Active Substance: TACROLIMUS
     Dates: start: 20240329
  7. VALGANCICLOVIR HYDROCHLORIDE [Concomitant]
     Active Substance: VALGANCICLOVIR HYDROCHLORIDE
  8. VORICONAZOLE [Concomitant]
     Active Substance: VORICONAZOLE
  9. ATORVASTATIN [Concomitant]
     Active Substance: ATORVASTATIN
  10. BUSPIRONE [Concomitant]
     Active Substance: BUSPIRONE HYDROCHLORIDE
  11. AZITHROMYCIN [Concomitant]
     Active Substance: AZITHROMYCIN
  12. MINERALS\VITAMINS [Concomitant]
     Active Substance: MINERALS\VITAMINS
  13. GABAPENTIN [Concomitant]
     Active Substance: GABAPENTIN
  14. TYLENOL [Concomitant]
     Active Substance: ACETAMINOPHEN
  15. WARFARIN [Concomitant]
     Active Substance: WARFARIN

REACTIONS (1)
  - Lung transplant rejection [None]

NARRATIVE: CASE EVENT DATE: 20251015
